FAERS Safety Report 24286211 (Version 1)
Quarter: 2024Q3

REPORT INFORMATION
  Report Type: Spontaneous
  Country: CN (occurrence: CN)
  Receive Date: 20240905
  Receipt Date: 20240905
  Transmission Date: 20241016
  Serious: Yes (Other)
  Sender: PFIZER
  Company Number: CN-PFIZER INC-PV202400116163

PATIENT
  Age: 89 Year
  Sex: Male
  Weight: 65 kg

DRUGS (2)
  1. LINEZOLID [Suspect]
     Active Substance: LINEZOLID
     Indication: Arthritis infective
     Dosage: 600 MG, 2X/DAY (60 DROPS/MIN)
     Route: 041
     Dates: start: 20240821, end: 20240821
  2. LINEZOLID [Suspect]
     Active Substance: LINEZOLID
     Dosage: (40 DROPS/MIN)
     Route: 041
     Dates: start: 20240828

REACTIONS (2)
  - Chest discomfort [Recovered/Resolved]
  - Tachypnoea [Recovered/Resolved]

NARRATIVE: CASE EVENT DATE: 20240821
